FAERS Safety Report 8875866 (Version 2)
Quarter: 2012Q4

REPORT INFORMATION
  Report Type: 
  Country: JP (occurrence: JP)
  Receive Date: 20121023
  Receipt Date: 20121113
  Transmission Date: 20130627
  Serious: Yes (Death, Hospitalization)
  Sender: FDA-Public Use
  Company Number: JP-ELI_LILLY_AND_COMPANY-JP201206000472

PATIENT
  Age: 80 Year
  Sex: Male
  Weight: 54 kg

DRUGS (37)
  1. GEMZAR [Suspect]
     Indication: PANCREATIC CARCINOMA STAGE IV
     Dosage: 1000 mg, UNK
     Route: 042
     Dates: start: 20080819, end: 20090202
  2. GEMZAR [Suspect]
     Dosage: 1400 mg, UNK
     Route: 042
     Dates: start: 20090209, end: 20090209
  3. GEMZAR [Suspect]
     Dosage: 1000 mg, UNK
     Route: 042
     Dates: start: 20090216, end: 20090216
  4. GEMZAR [Suspect]
     Dosage: 1400 mg, UNK
     Route: 042
     Dates: start: 20090302, end: 20090302
  5. GEMZAR [Suspect]
     Dosage: 1000 mg, UNK
     Route: 042
     Dates: start: 20090309, end: 20090309
  6. GEMZAR [Suspect]
     Dosage: 800 mg, UNK
     Route: 042
     Dates: start: 20090316, end: 20090316
  7. GEMZAR [Suspect]
     Dosage: 1400 mg, UNK
     Route: 042
     Dates: start: 20090330, end: 20090330
  8. GEMZAR [Suspect]
     Dosage: 1000 mg, UNK
     Route: 042
     Dates: start: 20090406, end: 20090406
  9. GEMZAR [Suspect]
     Dosage: 1200 mg, UNK
     Route: 042
     Dates: start: 20090413, end: 20090413
  10. GEMZAR [Suspect]
     Dosage: 1400 mg, UNK
     Route: 042
     Dates: start: 20090427, end: 20090601
  11. GEMZAR [Suspect]
     Dosage: 1000 mg, UNK
     Route: 042
     Dates: start: 20090608, end: 20090615
  12. GEMZAR [Suspect]
     Dosage: 1400 mg, UNK
     Route: 042
     Dates: start: 20090629, end: 20090629
  13. GEMZAR [Suspect]
     Dosage: 1200 mg, UNK
     Route: 042
     Dates: start: 20090706, end: 20090706
  14. GEMZAR [Suspect]
     Dosage: 1000 mg, UNK
     Route: 042
     Dates: start: 20090713, end: 20090713
  15. GEMZAR [Suspect]
     Dosage: 1400 mg, UNK
     Route: 042
     Dates: start: 20090727, end: 20090727
  16. GEMZAR [Suspect]
     Dosage: 1000 mg, UNK
     Route: 042
     Dates: start: 20090803, end: 20090810
  17. GEMZAR [Suspect]
     Dosage: 1400 mg, UNK
     Route: 042
     Dates: start: 20090824, end: 20090824
  18. GEMZAR [Suspect]
     Dosage: 1000 mg, UNK
     Route: 042
     Dates: start: 20090831, end: 20090831
  19. GEMZAR [Suspect]
     Dosage: 1400 mg, UNK
     Route: 042
     Dates: start: 20090907, end: 20091005
  20. GEMZAR [Suspect]
     Dosage: 1000 mg, UNK
     Route: 042
     Dates: start: 20091013, end: 20091013
  21. GEMZAR [Suspect]
     Dosage: 1400 mg, UNK
     Route: 042
     Dates: start: 20091026, end: 20091026
  22. GEMZAR [Suspect]
     Dosage: 1000 mg, UNK
     Route: 042
     Dates: start: 20091102, end: 20091109
  23. GEMZAR [Suspect]
     Dosage: 800 mg, UNK
     Route: 042
     Dates: start: 20091116, end: 20091124
  24. TS 1 [Concomitant]
     Indication: PANCREATIC CARCINOMA STAGE IV
     Dosage: 180 mg, UNK
     Dates: start: 20091116
  25. CASODEX [Concomitant]
     Dosage: 80 mg, qd
     Route: 048
     Dates: start: 20080806
  26. ENTOMOL [Concomitant]
     Dosage: 1 g, tid
     Route: 048
     Dates: start: 20080910, end: 20081214
  27. GASTER [Concomitant]
     Dosage: 1 DF, bid
     Route: 048
     Dates: start: 20080910, end: 20080916
  28. BIOFERMIN [Concomitant]
     Dosage: 1 g, tid
     Route: 048
     Dates: start: 20081201
  29. EXCELASE [Concomitant]
     Dosage: 1 DF, tid
     Route: 048
     Dates: start: 20090105
  30. COLONEL [Concomitant]
     Dosage: 1 DF, tid
     Route: 048
     Dates: start: 20090330
  31. NU-LOTAN [Concomitant]
     Dosage: 50 mg, UNK
     Route: 048
     Dates: start: 20090806
  32. LASIX                              /00032601/ [Concomitant]
     Dosage: 20 mg, UNK
     Route: 048
     Dates: start: 20091211
  33. DECADRAN                           /00016002/ [Concomitant]
     Indication: PROPHYLAXIS
     Dosage: 4 mg, UNK
     Route: 042
     Dates: start: 20080819
  34. DECADRAN                           /00016002/ [Concomitant]
     Indication: PROPHYLAXIS
     Dosage: 8 mg, UNK
     Route: 042
     Dates: start: 20080818
  35. LEUPLIN [Concomitant]
     Dosage: UNK
     Route: 058
     Dates: start: 20080917
  36. BAYLOTENSIN [Concomitant]
     Indication: HYPERTENSION
  37. ZANTAC [Concomitant]

REACTIONS (4)
  - Neoplasm progression [Fatal]
  - Cholangitis suppurative [Unknown]
  - Interstitial lung disease [Recovering/Resolving]
  - Renal failure chronic [Not Recovered/Not Resolved]
